FAERS Safety Report 7904384-9 (Version None)
Quarter: 2011Q4

REPORT INFORMATION
  Report Type: 
  Country: None (occurrence: None)
  Receive Date: 20111109
  Receipt Date: 20111031
  Transmission Date: 20120403
  Serious: Yes (Other)
  Sender: FDA-Public Use
  Company Number: US-BAYER-2011-063060

PATIENT
  Age: 30 Year
  Sex: Female
  Weight: 68 kg

DRUGS (8)
  1. DROSPIRENONE AND ETHINYL ESTRADIOL [Suspect]
     Indication: PREMENSTRUAL SYNDROME
     Dosage: UNK
     Dates: start: 20090102, end: 20100413
  2. YAZ [Suspect]
     Indication: PREMENSTRUAL SYNDROME
     Dosage: UNK
     Dates: start: 20090102, end: 20100413
  3. FLUVOXAMINE MALEATE [Concomitant]
     Dosage: 100 MG, UNK
     Route: 048
  4. NEFAZODONE HCL [Concomitant]
     Dosage: 150 MG, UNK
     Route: 048
  5. LAMICTAL [Concomitant]
     Dosage: 100 MG, UNK
     Route: 048
  6. GABAPENTIN [Concomitant]
     Dosage: 100 MG, UNK
     Route: 048
  7. FLUVOXAMINE MALEATE [Concomitant]
     Dosage: 50 MG, UNK
     Route: 048
  8. PROMETHAZINE [Concomitant]
     Dosage: 25 MG, UNK
     Route: 048

REACTIONS (8)
  - PAIN [None]
  - INJURY [None]
  - EMOTIONAL DISTRESS [None]
  - DEEP VEIN THROMBOSIS [None]
  - ANXIETY [None]
  - CHOLECYSTITIS CHRONIC [None]
  - GALLBLADDER INJURY [None]
  - GENERAL PHYSICAL HEALTH DETERIORATION [None]
